FAERS Safety Report 4490353-0 (Version None)
Quarter: 2004Q3

REPORT INFORMATION
  Report Type: 
  Country: None (occurrence: None)
  Receive Date: 20040921
  Receipt Date: 20031203
  Transmission Date: 20050211
  Serious: Yes (Hospitalization, Other)
  Sender: FDA-Public Use
  Company Number: 163-20785-03120107

PATIENT
  Age: 49 Year
  Sex: Female
  Weight: 91.173 kg

DRUGS (12)
  1. THALOMID [Suspect]
     Indication: BREAST CANCER METASTATIC
     Dosage: 200 MG, DAILY,  ORAL
     Route: 048
     Dates: start: 20030904, end: 20031007
  2. XELODA [Suspect]
     Indication: BREAST CANCER METASTATIC
     Dosage: 3500 MG, DAILY, ORAL
     Route: 048
     Dates: start: 20030904, end: 20030925
  3. PAXIL [Concomitant]
  4. PRINIVIL [Concomitant]
  5. PRILOSEC [Concomitant]
  6. OXYCONTIN [Concomitant]
  7. FOSAMAX (ALENDRONATE SODIUM) (TABLETS) [Concomitant]
  8. LORTAB [Concomitant]
  9. VIOXX [Concomitant]
  10. ZYRTEC [Concomitant]
  11. LASIX [Concomitant]
  12. OXYGEN (OXYGEN) [Concomitant]

REACTIONS (11)
  - COUGH [None]
  - DEEP VEIN THROMBOSIS [None]
  - DYSPNOEA [None]
  - HAEMATOCRIT DECREASED [None]
  - HAEMOGLOBIN DECREASED [None]
  - NAUSEA [None]
  - PALMAR-PLANTAR ERYTHRODYSAESTHESIA SYNDROME [None]
  - PLATELET COUNT DECREASED [None]
  - PLEURAL EFFUSION [None]
  - PRODUCTIVE COUGH [None]
  - VOMITING [None]
